FAERS Safety Report 7479712-1 (Version None)
Quarter: 2011Q2

REPORT INFORMATION
  Report Type: 
  Country: None (occurrence: None)
  Receive Date: 20110513
  Receipt Date: 20110505
  Transmission Date: 20111010
  Serious: Yes (Hospitalization)
  Sender: FDA-Public Use
  Company Number: BR-ASTRAZENECA-2011SE27519

PATIENT
  Age: 20566 Day
  Sex: Female
  Weight: 70 kg

DRUGS (8)
  1. CELECOXIB [Suspect]
     Indication: RHEUMATOID ARTHRITIS
     Route: 048
     Dates: start: 20090529
  2. ASPIRIN [Concomitant]
     Indication: CARDIOVASCULAR EVENT PROPHYLAXIS
     Route: 048
     Dates: start: 20060101
  3. CLORANA [Concomitant]
     Indication: HYPERTENSION
     Route: 048
     Dates: start: 20060101
  4. CAPOTEN [Concomitant]
     Indication: HYPERTENSION
     Route: 048
     Dates: start: 20060101
  5. NEXIUM [Suspect]
     Indication: GASTROOESOPHAGEAL REFLUX PROPHYLAXIS
     Route: 048
     Dates: start: 20090529
  6. TRYPTANOL [Concomitant]
     Indication: DYSTHYMIC DISORDER
     Route: 048
     Dates: start: 20060101
  7. TEGRETOL [Concomitant]
     Indication: DYSTHYMIC DISORDER
     Route: 048
     Dates: start: 20060101
  8. CHLORPROMAZINE [Concomitant]
     Indication: DYSTHYMIC DISORDER
     Route: 065
     Dates: start: 20091203

REACTIONS (1)
  - HYPERTENSIVE CRISIS [None]
